FAERS Safety Report 10015795 (Version 1)
Quarter: 2014Q1

REPORT INFORMATION
  Report Type: Spontaneous
  Country: US (occurrence: US)
  Receive Date: 20140317
  Receipt Date: 20140317
  Transmission Date: 20141002
  Serious: Yes (Death)
  Sender: FDA-Public Use
  Company Number: US-GLAXOSMITHKLINE-A1063913A

PATIENT
  Age: 64 Year
  Sex: Female

DRUGS (2)
  1. VENTOLIN [Suspect]
     Indication: EMPHYSEMA
     Route: 065
  2. SYMBICORT [Concomitant]

REACTIONS (1)
  - Squamous cell carcinoma of lung [Fatal]
